FAERS Safety Report 9558416 (Version 1)
Quarter: 2013Q3

REPORT INFORMATION
  Report Type: Spontaneous
  Country: US (occurrence: US)
  Receive Date: 20130926
  Receipt Date: 20130926
  Transmission Date: 20140515
  Serious: No
  Sender: FDA-Public Use
  Company Number: US-009507513-1309USA007249

PATIENT
  Sex: Female

DRUGS (1)
  1. PROVENTIL [Suspect]

REACTIONS (3)
  - Asthma [Unknown]
  - Drug dose omission [Unknown]
  - Product quality issue [Unknown]
